FAERS Safety Report 4700377-3 (Version None)
Quarter: 2005Q2

REPORT INFORMATION
  Report Type: 
  Country: None (occurrence: None)
  Receive Date: 20050207
  Receipt Date: 20050207
  Transmission Date: 20051028
  Serious: Yes (Other)
  Sender: FDA-Public Use
  Company Number: None

PATIENT
  Age: 49 Year
  Sex: Male
  Weight: 132.9039 kg

DRUGS (2)
  1. CLOZAPINE [Suspect]
     Dosage: TOTAL 800MG PO 200MG AM + NOON , 400MG HS
     Route: 048
     Dates: start: 20040901
  2. ATIVAN [Concomitant]

REACTIONS (8)
  - AGITATION [None]
  - DRUG INEFFECTIVE [None]
  - INSOMNIA [None]
  - PARANOIA [None]
  - PERSECUTORY DELUSION [None]
  - THERAPEUTIC RESPONSE UNEXPECTED WITH DRUG SUBSTITUTION [None]
  - THINKING ABNORMAL [None]
  - VERBAL ABUSE [None]
